FAERS Safety Report 13813335 (Version 1)
Quarter: 2017Q3

REPORT INFORMATION
  Report Type: Spontaneous
  Country: US (occurrence: US)
  Receive Date: 20170729
  Receipt Date: 20170729
  Transmission Date: 20171127
  Serious: No
  Sender: FDA-Public Use
  Company Number: US-SHIRE-US201714216

PATIENT
  Age: 77 Year
  Sex: Male

DRUGS (1)
  1. XIIDRA [Suspect]
     Active Substance: LIFITEGRAST
     Indication: DRY EYE
     Dosage: UNKNOWN
     Route: 047

REACTIONS (5)
  - Product quality issue [Unknown]
  - Drug ineffective [Recovering/Resolving]
  - Incorrect dose administered [Unknown]
  - Eyelid disorder [Unknown]
  - Product container issue [Unknown]
